FAERS Safety Report 7212293-6 (Version None)
Quarter: 2011Q1

REPORT INFORMATION
  Report Type: 
  Country: None (occurrence: None)
  Receive Date: 20110106
  Receipt Date: 20110103
  Transmission Date: 20110831
  Serious: Yes (Life-Threatening, Other)
  Sender: FDA-Public Use
  Company Number: PHHY2011US00559

PATIENT
  Sex: Female

DRUGS (2)
  1. COREG [Concomitant]
     Indication: CARDIAC DISORDER
     Dosage: UNK
  2. LOPRESSOR [Suspect]
     Dosage: UNK
     Dates: start: 20110102

REACTIONS (2)
  - BLOOD PRESSURE DECREASED [None]
  - SEPSIS [None]
